FAERS Safety Report 13423571 (Version 2)
Quarter: 2017Q2

REPORT INFORMATION
  Report Type: Spontaneous
  Country: BG (occurrence: BG)
  Receive Date: 20170410
  Receipt Date: 20170417
  Transmission Date: 20170830
  Serious: Yes (Other)
  Sender: FDA-Public Use
  Company Number: BG-BAYER-2017-060959

PATIENT
  Age: 49 Year
  Sex: Male

DRUGS (3)
  1. NEXAVAR [Suspect]
     Active Substance: SORAFENIB
     Indication: CLEAR CELL RENAL CELL CARCINOMA
     Dosage: 400 MG, BID
     Route: 048
     Dates: start: 20130330, end: 20140107
  2. VERAPAMIL [Concomitant]
     Active Substance: VERAPAMIL HYDROCHLORIDE
     Dosage: 80 MG, BID
  3. RYTMONORM [Concomitant]
     Active Substance: PROPAFENONE
     Dosage: 150 MG, BID

REACTIONS (6)
  - Anaemia [None]
  - Clear cell renal cell carcinoma [None]
  - Fatigue [None]
  - Lymphadenopathy mediastinal [None]
  - Palmar-plantar erythrodysaesthesia syndrome [None]
  - Clear cell renal cell carcinoma [None]

NARRATIVE: CASE EVENT DATE: 201401
